FAERS Safety Report 23048328 (Version 1)
Quarter: 2023Q4

REPORT INFORMATION
  Report Type: Spontaneous
  Country: US (occurrence: US)
  Receive Date: 20231010
  Receipt Date: 20231010
  Transmission Date: 20240110
  Serious: No
  Sender: FDA-Public Use
  Company Number: US-AMGEN-USASP2023177564

PATIENT

DRUGS (4)
  1. REPATHA [Suspect]
     Active Substance: EVOLOCUMAB
     Indication: Type IIa hyperlipidaemia
     Dosage: UNK, Q2WK
     Route: 065
  2. REPATHA [Suspect]
     Active Substance: EVOLOCUMAB
     Dosage: UNK, QMO
     Route: 065
  3. REPATHA [Suspect]
     Active Substance: EVOLOCUMAB
     Dosage: UNK, Q2WK
     Route: 065
  4. REPATHA [Suspect]
     Active Substance: EVOLOCUMAB
     Dosage: UNK, Q3WK
     Route: 065

REACTIONS (9)
  - Abdominal discomfort [Recovered/Resolved]
  - Muscular weakness [Unknown]
  - Vision blurred [Unknown]
  - Chest discomfort [Not Recovered/Not Resolved]
  - Muscle tightness [Not Recovered/Not Resolved]
  - Palpitations [Unknown]
  - Muscle spasms [Recovered/Resolved]
  - Respiration abnormal [Unknown]
  - Fatigue [Unknown]
